FAERS Safety Report 6277862-9 (Version None)
Quarter: 2009Q3

REPORT INFORMATION
  Report Type: 
  Country: None (occurrence: None)
  Receive Date: 20090717
  Receipt Date: 20090717
  Transmission Date: 20100115
  Serious: Yes (Other)
  Sender: FDA-Public Use
  Company Number: None

PATIENT
  Age: 65 Year
  Sex: Female
  Weight: 58.9676 kg

DRUGS (2)
  1. NIASPAN [Suspect]
     Indication: BLOOD CHOLESTEROL
     Dosage: 1000 MG DAILY PO
     Route: 048
     Dates: start: 20090215, end: 20090610
  2. NIASPAN [Suspect]
     Indication: BLOOD TRIGLYCERIDES INCREASED
     Dosage: 1000 MG DAILY PO
     Route: 048
     Dates: start: 20090215, end: 20090610

REACTIONS (5)
  - CONTUSION [None]
  - COUGH [None]
  - FEAR [None]
  - HYPERSENSITIVITY [None]
  - INJECTION SITE CYST [None]
